FAERS Safety Report 5787313-6 (Version None)
Quarter: 2008Q2

REPORT INFORMATION
  Report Type: 
  Country: None (occurrence: None)
  Receive Date: 20080625
  Receipt Date: 20070921
  Transmission Date: 20081010
  Serious: No
  Sender: FDA-Public Use
  Company Number: US-ASTRAZENECA-2007UW22301

PATIENT
  Age: 75 Year
  Sex: Female
  Weight: 74.8 kg

DRUGS (2)
  1. PULMICORT RESPULES [Suspect]
     Indication: DYSPNOEA
     Route: 055
     Dates: start: 20070801
  2. PULMICORT RESPULES [Suspect]
     Indication: ASTHMA
     Route: 055
     Dates: start: 20070801

REACTIONS (5)
  - DYSGEUSIA [None]
  - DYSPNOEA [None]
  - INCREASED UPPER AIRWAY SECRETION [None]
  - RETCHING [None]
  - THROAT IRRITATION [None]
